FAERS Safety Report 12137970 (Version 1)
Quarter: 2016Q1

REPORT INFORMATION
  Report Type: Spontaneous
  Country: US (occurrence: US)
  Receive Date: 20160302
  Receipt Date: 20160302
  Transmission Date: 20160526
  Serious: No
  Sender: FDA-Public Use
  Company Number: US-PERRIGO-15US005604

PATIENT
  Sex: Male

DRUGS (5)
  1. SELENIUM SULFIDE RX 2.5% 2J5 [Suspect]
     Active Substance: SELENIUM SULFIDE
     Dosage: UNKNOWN, UNKNOWN
     Route: 047
     Dates: start: 2014, end: 2015
  2. CALCIUM [Concomitant]
     Active Substance: CALCIUM
     Indication: SUPPLEMENTATION THERAPY
     Dosage: UNKNOWN, UNKNOWN
     Route: 048
  3. POLYETHYLENE GLYCOL 3350. [Concomitant]
     Active Substance: POLYETHYLENE GLYCOL 3350
     Indication: CONSTIPATION
     Dosage: UNKNOWN, UNKNOWN
     Route: 048
  4. SELENIUM SULFIDE RX 2.5% 2J5 [Suspect]
     Active Substance: SELENIUM SULFIDE
     Indication: SEBORRHOEIC DERMATITIS
     Dosage: UNKNOWN, UNKNOWN
     Route: 061
     Dates: start: 2014, end: 2015
  5. ASPIRIN ENTERIC COATED K.P. [Concomitant]
     Active Substance: ASPIRIN
     Indication: THROMBOSIS
     Dosage: UNKNOWN, UNKNOWN
     Route: 048

REACTIONS (3)
  - Accidental exposure to product [Recovered/Resolved]
  - Eye irritation [Recovered/Resolved]
  - Skin atrophy [Unknown]

NARRATIVE: CASE EVENT DATE: 2014
